FAERS Safety Report 15887491 (Version 2)
Quarter: 2019Q3

REPORT INFORMATION
  Report Type: Spontaneous
  Country: CA (occurrence: CA)
  Receive Date: 20190130
  Receipt Date: 20190909
  Transmission Date: 20191004
  Serious: Yes (Other)
  Sender: FDA-Public Use
  Company Number: CA-TEVA-2019-CA-1005434

PATIENT
  Age: 47 Year
  Sex: Female

DRUGS (8)
  1. PROPRANOLOL [Suspect]
     Active Substance: PROPRANOLOL HYDROCHLORIDE
     Indication: MIGRAINE
     Route: 065
  2. SAXENDA [Suspect]
     Active Substance: LIRAGLUTIDE
     Dosage: 3 MILLIGRAM DAILY; 3ML MULTIDOSE PREFILLED PEN. EACH PEN DELIVERS DOSES OF 0.6MG, 1.2MG, 1.8MG,2.4MG
     Route: 058
  3. SAXENDA [Suspect]
     Active Substance: LIRAGLUTIDE
     Dosage: 2.4 MILLIGRAM DAILY; 3ML MULTIDOSE PREFILLED PEN. EACH PEN DELIVERS DOSES OF 0.6MG, 1.2MG, 1.8MG,2.4
     Route: 058
  4. SAXENDA [Suspect]
     Active Substance: LIRAGLUTIDE
     Indication: WEIGHT CONTROL
     Dosage: 2.4 MILLIGRAM DAILY; 3ML MULTIDOSE PREFILLED PEN. EACH PEN DELIVERS DOSES OF 0.6MG, 1.2MG, 1.8MG,2.4
     Route: 058
  5. SAXENDA [Suspect]
     Active Substance: LIRAGLUTIDE
     Dosage: 1.8 MILLIGRAM DAILY; 3ML MULTIDOSE PREFILLED PEN. EACH PEN DELIVERS DOSES OF 0.6MG, 1.2MG, 1.8MG,2.4
     Route: 058
  6. PROPRANOLOL [Suspect]
     Active Substance: PROPRANOLOL HYDROCHLORIDE
     Indication: OFF LABEL USE
  7. SAXENDA [Suspect]
     Active Substance: LIRAGLUTIDE
     Dosage: 3ML MULTIDOSE PREFILLED PEN. EACH PEN DELIVERS DOSES OF 0.6MG, 1.2MG, 1.8MG,2.4MG AND 3MG
     Route: 058
  8. ELAVIL [Concomitant]
     Active Substance: AMITRIPTYLINE HYDROCHLORIDE

REACTIONS (5)
  - Syncope [Not Recovered/Not Resolved]
  - Dysgeusia [Not Recovered/Not Resolved]
  - Headache [Not Recovered/Not Resolved]
  - Fatigue [Not Recovered/Not Resolved]
  - Intentional product use issue [Not Recovered/Not Resolved]
